FAERS Safety Report 10955432 (Version 2)
Quarter: 2015Q2

REPORT INFORMATION
  Report Type: Spontaneous
  Country: ES (occurrence: ES)
  Receive Date: 20150326
  Receipt Date: 20150401
  Transmission Date: 20150821
  Serious: Yes (Other)
  Sender: FDA-Public Use
  Company Number: ES-PFIZER INC-2015095292

PATIENT
  Sex: Male

DRUGS (1)
  1. SUTENT [Suspect]
     Active Substance: SUNITINIB MALATE
     Indication: RENAL CANCER

REACTIONS (5)
  - Diverticulitis [Unknown]
  - Chronic gastritis [Unknown]
  - Enterocolitis haemorrhagic [Unknown]
  - Asthenia [Unknown]
  - Haematochezia [Unknown]
